FAERS Safety Report 9206267 (Version 1)
Quarter: 2013Q2

REPORT INFORMATION
  Report Type: Spontaneous
  Country: US (occurrence: US)
  Receive Date: 20130403
  Receipt Date: 20130403
  Transmission Date: 20140414
  Serious: No
  Sender: FDA-Public Use
  Company Number: US-PFIZER INC-2013102538

PATIENT
  Age: 82 Year
  Sex: Male
  Weight: 80.73 kg

DRUGS (1)
  1. FLECTOR [Suspect]
     Indication: SCIATIC NERVE NEUROPATHY
     Dosage: ONE 1.3 % PATCH, EVERY 12 HOURS
     Route: 061
     Dates: start: 201303, end: 201303

REACTIONS (1)
  - Rash erythematous [Unknown]
